FAERS Safety Report 6992490-5 (Version None)
Quarter: 2010Q3

REPORT INFORMATION
  Report Type: 
  Country: None (occurrence: None)
  Receive Date: 20100915
  Receipt Date: 20100831
  Transmission Date: 20110219
  Serious: Yes (Death, Life-Threatening, Hospitalization)
  Sender: FDA-Public Use
  Company Number: 1000011668

PATIENT
  Age: 88 Year
  Sex: Female

DRUGS (12)
  1. FOSFOMYCIN (FOSFOMYCIN TROMETAMOL) (GRANULATE) [Suspect]
     Indication: CYSTITIS
     Dosage: 0.4286 GM (3 GM, 1 IN 1 WK), ORAL
     Route: 048
     Dates: start: 20091212, end: 20091231
  2. SINTROM [Suspect]
     Indication: ARRHYTHMIA
     Dates: end: 20091231
  3. POTASSIUM CHLORIDE [Suspect]
     Indication: HYPOKALAEMIA
     Dosage: 600 MG (600 MG, 1 IN 1 D), ORAL
     Route: 048
     Dates: end: 20091231
  4. COZAAR [Suspect]
     Indication: HYPERTENSION
     Dosage: 1 DOSAGE FORMS (1 DOSAGE FORMS, 1 IN 1 D), ORAL
     Route: 048
     Dates: end: 20091231
  5. URBANYL (CLOBAZAM) [Suspect]
     Indication: ANXIETY
     Dosage: 0.5 DOSAGE FORMS (0.5 DOSAGE FORMS, 1 IN 1 D), ORAL
     Route: 048
     Dates: end: 20091231
  6. CALCIUM D3 (CALCIUM D3) [Suspect]
     Indication: CALCIUM DEFICIENCY
     Dosage: 1 DOSAGE FORMS (1 DOSAGE FORMS, 1 IN 1 D), ORAL
     Route: 048
     Dates: end: 20091231
  7. REPAGLINIDE [Suspect]
     Indication: DIABETES MELLITUS
     Dosage: ORAL
     Route: 048
     Dates: end: 20091231
  8. NEO-MERCAZOLE TAB [Concomitant]
  9. TRINIPATCH (GLYCERYL TRINITRATE) (GLYCERYL TRINITRATE) [Concomitant]
  10. LOXEN (NICARDIPINE HYDROCHLORIDE) (NICARDIPINE HYDROCHLORIDE) [Concomitant]
  11. LASILIX (FUROSEMIDE) (FUROSEMIDE) [Concomitant]
  12. CORDARONE (AMIODARONE) (AMIODARONE) [Concomitant]

REACTIONS (14)
  - ABDOMINAL DISTENSION [None]
  - ABDOMINAL HERNIA [None]
  - ABDOMINAL PAIN [None]
  - ABDOMINAL WALL HAEMATOMA [None]
  - ANAEMIA [None]
  - ASTHENIA [None]
  - CACHEXIA [None]
  - CARDIAC FAILURE [None]
  - DECUBITUS ULCER [None]
  - IMMUNE RECONSTITUTION SYNDROME [None]
  - MENTAL IMPAIRMENT [None]
  - NUTRITIONAL CONDITION ABNORMAL [None]
  - RENAL FAILURE ACUTE [None]
  - VOMITING [None]
